FAERS Safety Report 7700056-4 (Version None)
Quarter: 2011Q3

REPORT INFORMATION
  Report Type: 
  Country: None (occurrence: None)
  Receive Date: 20110822
  Receipt Date: 20110815
  Transmission Date: 20111222
  Serious: Yes (Other)
  Sender: FDA-Public Use
  Company Number: DE-AMGEN-DEUCT2011007264

PATIENT
  Age: 71 Year
  Sex: Male

DRUGS (12)
  1. LEFLUNOMIDE [Concomitant]
     Indication: RHEUMATOID ARTHRITIS
     Dosage: 10 MG, UNK
     Dates: start: 20060801
  2. RAMIPRIL [Concomitant]
     Dosage: 2.5
  3. ETANERCEPT [Suspect]
     Dosage: 50 MG, UNK
  4. METOPROLOL SUCCINATE [Concomitant]
     Dosage: 100
  5. SIMVASTATIN [Concomitant]
     Dosage: 20 MG, 1X/DAY
  6. COLECALCIFEROL [Concomitant]
     Dosage: 1000
  7. NOVALGIN                           /06276704/ [Concomitant]
     Dosage: UNK
  8. IODINE [Concomitant]
     Dosage: 100
  9. MARCUMAR [Concomitant]
     Dosage: UNK
  10. ETANERCEPT [Suspect]
     Indication: RHEUMATOID ARTHRITIS
     Dosage: 25 MG, QWK
     Dates: start: 20020301
  11. OMEPRAZOLE [Concomitant]
     Dosage: 20
  12. TORSEMIDE [Concomitant]
     Dosage: 10 MG, UNK

REACTIONS (2)
  - CARDIAC FAILURE CONGESTIVE [None]
  - PULMONARY CONGESTION [None]
